FAERS Safety Report 17890287 (Version 7)
Quarter: 2020Q3

REPORT INFORMATION
  Report Type: Spontaneous
  Country: US (occurrence: US)
  Receive Date: 20200612
  Receipt Date: 20200821
  Transmission Date: 20201103
  Serious: Yes (Hospitalization)
  Sender: FDA-Public Use
  Company Number: US-ACTELION-A-US2020-206082

PATIENT
  Age: 32 Year
  Sex: Female
  Weight: 61.68 kg

DRUGS (5)
  1. VELETRI [Suspect]
     Active Substance: EPOPROSTENOL
     Indication: PULMONARY ARTERIAL HYPERTENSION
     Dosage: 12 NG/KG, PER MIN
     Route: 042
  2. ELIQUIS [Concomitant]
     Active Substance: APIXABAN
  3. VELETRI [Suspect]
     Active Substance: EPOPROSTENOL
     Dosage: 18 NG/KG, PER MIN
     Route: 042
  4. VELETRI [Suspect]
     Active Substance: EPOPROSTENOL
     Dosage: 16 NG/KG, PER MIN
     Route: 042
  5. REMODULIN [Suspect]
     Active Substance: TREPROSTINIL
     Indication: PRODUCT USED FOR UNKNOWN INDICATION
     Route: 065

REACTIONS (12)
  - Cough [Not Recovered/Not Resolved]
  - Catheter site pruritus [Unknown]
  - Palpitations [Unknown]
  - Nausea [Unknown]
  - Catheter site discharge [Unknown]
  - Pain in jaw [Unknown]
  - Diarrhoea [Unknown]
  - Diuretic therapy [Unknown]
  - Vomiting [Unknown]
  - Electrolyte imbalance [Unknown]
  - Dysphonia [Not Recovered/Not Resolved]
  - Catheter site irritation [Unknown]

NARRATIVE: CASE EVENT DATE: 201912
